FAERS Safety Report 6619869-5 (Version None)
Quarter: 2010Q1

REPORT INFORMATION
  Report Type: 
  Country: None (occurrence: None)
  Receive Date: 20100304
  Receipt Date: 20100218
  Transmission Date: 20100710
  Serious: Yes (Other)
  Sender: FDA-Public Use
  Company Number: TRP_06804_2010

PATIENT
  Sex: Female

DRUGS (2)
  1. RIBASPHERE [Suspect]
     Dosage: (UNK ORAL)
     Route: 048
     Dates: start: 20091218
  2. PEG-INTRON [Suspect]
     Indication: HEPATITIS C
     Dosage: (UNK SUBCUTANEOUS)
     Route: 058
     Dates: start: 20091218

REACTIONS (9)
  - ANXIETY [None]
  - CONDITION AGGRAVATED [None]
  - DEPRESSION [None]
  - DYSPNOEA [None]
  - HEART RATE INCREASED [None]
  - INJECTION SITE ERYTHEMA [None]
  - INSOMNIA [None]
  - SKIN ULCER [None]
  - SUICIDAL IDEATION [None]
